FAERS Safety Report 18615247 (Version 1)
Quarter: 2020Q4

REPORT INFORMATION
  Report Type: Other
  Country: DE (occurrence: DE)
  Receive Date: 20201215
  Receipt Date: 20201215
  Transmission Date: 20210114
  Serious: Yes (Hospitalization)
  Sender: FDA-Public Use
  Company Number: DE-ROCHE-2397687

PATIENT
  Age: 51 Year
  Sex: Female
  Weight: 44 kg

DRUGS (18)
  1. MST (GERMANY) [Concomitant]
     Indication: TUMOUR PAIN
     Route: 048
     Dates: start: 20190911, end: 20190925
  2. NACL [Concomitant]
     Active Substance: SODIUM CHLORIDE
     Dates: start: 20191001, end: 20191001
  3. CITALOPRAM [Concomitant]
     Active Substance: CITALOPRAM HYDROBROMIDE
     Route: 048
     Dates: start: 20190829, end: 20190905
  4. MST (GERMANY) [Concomitant]
     Route: 048
     Dates: start: 20190927
  5. METAMIZOL [Concomitant]
     Active Substance: METAMIZOLE SODIUM
     Route: 048
     Dates: start: 20190903
  6. ATEZOLIZUMAB. [Suspect]
     Active Substance: ATEZOLIZUMAB
     Indication: PANIC DISORDER
     Route: 042
     Dates: start: 20190613
  7. VENLAFAXIN [Concomitant]
     Active Substance: VENLAFAXINE HYDROCHLORIDE
     Indication: ADJUSTMENT DISORDER WITH DEPRESSED MOOD
     Route: 048
     Dates: end: 20190926
  8. NACL [Concomitant]
     Active Substance: SODIUM CHLORIDE
     Dates: start: 20190921, end: 20190930
  9. TAVOR (LORAZEPAM) [Concomitant]
     Active Substance: LORAZEPAM
     Indication: ADJUSTMENT DISORDER WITH DEPRESSED MOOD
     Route: 048
     Dates: start: 20190904, end: 20190907
  10. EFFENTORA [Concomitant]
     Active Substance: FENTANYL CITRATE
     Indication: TUMOUR PAIN
     Route: 048
     Dates: start: 20190905, end: 20190905
  11. VENLAFAXIN [Concomitant]
     Active Substance: VENLAFAXINE HYDROCHLORIDE
     Route: 048
     Dates: start: 20190927
  12. INNOHEP [Concomitant]
     Active Substance: TINZAPARIN SODIUM
     Indication: JUGULAR VEIN THROMBOSIS
     Route: 058
     Dates: start: 201901
  13. MST (GERMANY) [Concomitant]
     Route: 048
     Dates: start: 20190926, end: 20190926
  14. MST (GERMANY) [Concomitant]
     Route: 048
     Dates: start: 20190102, end: 20190113
  15. METAMIZOL [Concomitant]
     Active Substance: METAMIZOLE SODIUM
     Indication: TUMOUR PAIN
     Route: 048
     Dates: start: 20190102, end: 20190902
  16. CITALOPRAM [Concomitant]
     Active Substance: CITALOPRAM HYDROBROMIDE
     Indication: ADJUSTMENT DISORDER WITH DEPRESSED MOOD
     Route: 048
     Dates: start: 20190904
  17. HALDOL [Concomitant]
     Active Substance: HALOPERIDOL
     Route: 048
     Dates: start: 20190904, end: 20190905
  18. MST (GERMANY) [Concomitant]
     Route: 048
     Dates: start: 20190114, end: 20190910

REACTIONS (5)
  - Tumour pain [Recovered/Resolved]
  - Cough [Recovered/Resolved]
  - General physical health deterioration [Recovered/Resolved]
  - Dysphagia [Recovered/Resolved]
  - Pneumonia [Recovered/Resolved]

NARRATIVE: CASE EVENT DATE: 20190828
